FAERS Safety Report 25337636 (Version 1)
Quarter: 2025Q2

REPORT INFORMATION
  Report Type: Spontaneous
  Country: PL (occurrence: PL)
  Receive Date: 20250520
  Receipt Date: 20250520
  Transmission Date: 20250717
  Serious: Yes (Other)
  Sender: MYLAN
  Company Number: PL-002147023-NVSC2025PL068237

PATIENT
  Age: 53 Year
  Sex: Male

DRUGS (32)
  1. IMATINIB [Suspect]
     Active Substance: IMATINIB
     Indication: Chronic myeloid leukaemia
     Dosage: 400 MG, QD
     Dates: start: 20180226
  2. IMATINIB [Suspect]
     Active Substance: IMATINIB
     Dosage: 400 MG, QD
     Route: 065
     Dates: start: 20180226
  3. IMATINIB [Suspect]
     Active Substance: IMATINIB
     Dosage: 400 MG, QD
     Route: 065
     Dates: start: 20180226
  4. IMATINIB [Suspect]
     Active Substance: IMATINIB
     Dosage: 400 MG, QD
     Dates: start: 20180226
  5. OLANZAPINE [Concomitant]
     Active Substance: OLANZAPINE
     Indication: Schizophrenia
     Dosage: 10 MILLIGRAM, BID (20 MG, QD)
  6. OLANZAPINE [Concomitant]
     Active Substance: OLANZAPINE
     Dosage: 10 MILLIGRAM, BID (20 MG, QD)
     Route: 065
  7. OLANZAPINE [Concomitant]
     Active Substance: OLANZAPINE
     Dosage: 10 MILLIGRAM, BID (20 MG, QD)
     Route: 065
  8. OLANZAPINE [Concomitant]
     Active Substance: OLANZAPINE
     Dosage: 10 MILLIGRAM, BID (20 MG, QD)
  9. PRIDINOL [Concomitant]
     Active Substance: PRIDINOL
     Indication: Schizophrenia
     Dosage: 5 MILLIGRAM, TID (15 MG, QD)
  10. PRIDINOL [Concomitant]
     Active Substance: PRIDINOL
     Dosage: 5 MILLIGRAM, TID (15 MG, QD)
     Route: 065
  11. PRIDINOL [Concomitant]
     Active Substance: PRIDINOL
     Dosage: 5 MILLIGRAM, TID (15 MG, QD)
     Route: 065
  12. PRIDINOL [Concomitant]
     Active Substance: PRIDINOL
     Dosage: 5 MILLIGRAM, TID (15 MG, QD)
  13. VALPROIC ACID [Concomitant]
     Active Substance: VALPROIC ACID
     Indication: Schizophrenia
     Dosage: 500 MILLIGRAM, BID (1000 MG, QD)
  14. VALPROIC ACID [Concomitant]
     Active Substance: VALPROIC ACID
     Dosage: 500 MILLIGRAM, BID (1000 MG, QD)
     Route: 065
  15. VALPROIC ACID [Concomitant]
     Active Substance: VALPROIC ACID
     Dosage: 500 MILLIGRAM, BID (1000 MG, QD)
     Route: 065
  16. VALPROIC ACID [Concomitant]
     Active Substance: VALPROIC ACID
     Dosage: 500 MILLIGRAM, BID (1000 MG, QD)
  17. BIPERIDEN [Concomitant]
     Active Substance: BIPERIDEN
     Indication: Schizophrenia
     Dosage: 2 MILLIGRAM, BID (4 MG, QD)
  18. BIPERIDEN [Concomitant]
     Active Substance: BIPERIDEN
     Dosage: 2 MILLIGRAM, BID (4 MG, QD)
     Route: 065
  19. BIPERIDEN [Concomitant]
     Active Substance: BIPERIDEN
     Dosage: 2 MILLIGRAM, BID (4 MG, QD)
     Route: 065
  20. BIPERIDEN [Concomitant]
     Active Substance: BIPERIDEN
     Dosage: 2 MILLIGRAM, BID (4 MG, QD)
  21. LEVOMEPROMAZINE [Concomitant]
     Active Substance: LEVOMEPROMAZINE
     Indication: Schizophrenia
     Dosage: 25 MG, QD (1 X 25 MG DAILY)
  22. LEVOMEPROMAZINE [Concomitant]
     Active Substance: LEVOMEPROMAZINE
     Dosage: 25 MG, QD (1 X 25 MG DAILY)
     Route: 065
  23. LEVOMEPROMAZINE [Concomitant]
     Active Substance: LEVOMEPROMAZINE
     Dosage: 25 MG, QD (1 X 25 MG DAILY)
     Route: 065
  24. LEVOMEPROMAZINE [Concomitant]
     Active Substance: LEVOMEPROMAZINE
     Dosage: 25 MG, QD (1 X 25 MG DAILY)
  25. HYDROXYUREA [Concomitant]
     Active Substance: HYDROXYUREA
     Indication: Product used for unknown indication
  26. HYDROXYUREA [Concomitant]
     Active Substance: HYDROXYUREA
  27. HYDROXYUREA [Concomitant]
     Active Substance: HYDROXYUREA
     Route: 065
  28. HYDROXYUREA [Concomitant]
     Active Substance: HYDROXYUREA
     Route: 065
  29. HYDROXYUREA [Concomitant]
     Active Substance: HYDROXYUREA
     Dosage: 2000 MG, QD
  30. HYDROXYUREA [Concomitant]
     Active Substance: HYDROXYUREA
     Dosage: 2000 MG, QD
  31. HYDROXYUREA [Concomitant]
     Active Substance: HYDROXYUREA
     Dosage: 2000 MG, QD
     Route: 065
  32. HYDROXYUREA [Concomitant]
     Active Substance: HYDROXYUREA
     Dosage: 2000 MG, QD
     Route: 065

REACTIONS (7)
  - Cytopenia [Unknown]
  - Gravitational oedema [Unknown]
  - Asthenia [Unknown]
  - Nausea [Unknown]
  - Dyspepsia [Unknown]
  - Aphthous ulcer [Unknown]
  - Laboratory test abnormal [Unknown]
